FAERS Safety Report 4321801-4 (Version None)
Quarter: 2004Q1

REPORT INFORMATION
  Report Type: 
  Country: None (occurrence: None)
  Receive Date: 20040322
  Receipt Date: 20040112
  Transmission Date: 20041129
  Serious: No
  Sender: FDA-Public Use
  Company Number: US-BRISTOL-MYERS SQUIBB COMPANY-12480463

PATIENT
  Age: 65 Year
  Sex: Female

DRUGS (6)
  1. MONISTAT [Suspect]
     Indication: VAGINAL MYCOSIS
     Route: 067
     Dates: start: 20040111, end: 20040111
  2. ACTOS [Concomitant]
  3. AMARYL [Concomitant]
  4. PREVACID [Concomitant]
  5. PREMARIN [Concomitant]
  6. SINGULAIR [Concomitant]

REACTIONS (1)
  - VAGINAL BURNING SENSATION [None]
